FAERS Safety Report 7868020-2 (Version None)
Quarter: 2011Q4

REPORT INFORMATION
  Report Type: 
  Country: None (occurrence: None)
  Receive Date: 20111028
  Receipt Date: 20111019
  Transmission Date: 20120403
  Serious: Yes (Hospitalization, Disabling)
  Sender: FDA-Public Use
  Company Number: PHHY2011AT89280

PATIENT
  Age: 52 Year
  Sex: Male
  Weight: 108 kg

DRUGS (5)
  1. CARBOPLATIN [Suspect]
     Route: 042
     Dates: start: 20110324, end: 20110601
  2. AVASTIN [Suspect]
     Dosage: 7.5 MG/KG, UNK
     Dates: start: 20110324, end: 20110713
  3. AVASTIN [Suspect]
     Dates: end: 20110921
  4. CARBOPLATIN [Suspect]
     Route: 042
     Dates: start: 20110601, end: 20110713
  5. ALIMTA [Suspect]
     Dosage: 500 MG/M2, UNK
     Dates: start: 20110324, end: 20110713

REACTIONS (1)
  - CARDIAC FAILURE [None]
